FAERS Safety Report 13456652 (Version 1)
Quarter: 2017Q2

REPORT INFORMATION
  Report Type: Report from Study
  Country: BR (occurrence: BR)
  Receive Date: 20170419
  Receipt Date: 20170419
  Transmission Date: 20170830
  Serious: Yes (Other)
  Sender: FDA-Public Use
  Company Number: BR-JNJFOC-20170303566

PATIENT
  Age: 69 Year
  Sex: Female
  Weight: 81 kg

DRUGS (9)
  1. CALCIUM [Concomitant]
     Active Substance: CALCIUM
     Route: 065
  2. NOVALGINA [Concomitant]
     Active Substance: METAMIZOLE SODIUM
     Route: 065
  3. SIMPONI [Suspect]
     Active Substance: GOLIMUMAB
     Indication: RHEUMATOID ARTHRITIS
     Route: 058
     Dates: start: 20160707
  4. AZUKON [Concomitant]
     Active Substance: GLICLAZIDE
     Route: 065
  5. SINOT CLAV [Concomitant]
     Route: 065
  6. CARVEDILOL. [Concomitant]
     Active Substance: CARVEDILOL
     Route: 065
  7. ARAVA [Concomitant]
     Active Substance: LEFLUNOMIDE
     Route: 065
  8. PREDNISOLONE. [Concomitant]
     Active Substance: PREDNISOLONE
     Route: 065
  9. LANSOPRAZOLE. [Concomitant]
     Active Substance: LANSOPRAZOLE
     Route: 065

REACTIONS (7)
  - Upper limb fracture [Not Recovered/Not Resolved]
  - Retinal detachment [Unknown]
  - Open globe injury [Unknown]
  - Fall [Unknown]
  - Abscess neck [Unknown]
  - Memory impairment [Unknown]
  - Soft tissue necrosis [Unknown]

NARRATIVE: CASE EVENT DATE: 20170212
